FAERS Safety Report 12093157 (Version 1)
Quarter: 2016Q1

REPORT INFORMATION
  Report Type: Spontaneous
  Country: US (occurrence: US)
  Receive Date: 20160219
  Receipt Date: 20160219
  Transmission Date: 20160526
  Serious: No
  Sender: FDA-Public Use
  Company Number: US-TEVA-612016USA

PATIENT
  Age: 35 Year
  Sex: Female

DRUGS (1)
  1. GENERIC ADDERALL [Suspect]
     Active Substance: AMPHETAMINE ASPARTATE\AMPHETAMINE SULFATE\DEXTROAMPHETAMINE SACCHARATE\DEXTROAMPHETAMINE SULFATE
     Indication: ATTENTION DEFICIT/HYPERACTIVITY DISORDER
     Dosage: 30 MILLIGRAM DAILY; TOOK 1 DOSE
     Route: 065
     Dates: start: 20150905

REACTIONS (6)
  - Depression [Recovered/Resolved]
  - Crying [Recovered/Resolved]
  - Feeling abnormal [Not Recovered/Not Resolved]
  - Somnolence [Recovered/Resolved]
  - Affect lability [Recovered/Resolved]
  - Product substitution issue [Unknown]

NARRATIVE: CASE EVENT DATE: 20150905
